FAERS Safety Report 7053048-5 (Version None)
Quarter: 2010Q4

REPORT INFORMATION
  Report Type: 
  Country: None (occurrence: None)
  Receive Date: 20101020
  Receipt Date: 20101015
  Transmission Date: 20110411
  Serious: Yes (Other)
  Sender: FDA-Public Use
  Company Number: US-ASTRAZENECA-2007UW06083

PATIENT
  Age: 455 Month
  Sex: Male
  Weight: 108.9 kg

DRUGS (15)
  1. SEROQUEL [Suspect]
     Indication: SCHIZOPHRENIA
     Dosage: 200-600 MG, TWO TIMES A DAY
     Route: 048
     Dates: start: 20000101, end: 20051201
  2. SEROQUEL [Suspect]
     Indication: BIPOLAR DISORDER
     Dosage: 200-600 MG, TWO TIMES A DAY
     Route: 048
     Dates: start: 20000101, end: 20051201
  3. SEROQUEL [Suspect]
     Indication: DEPRESSION
     Dosage: 200-600 MG, TWO TIMES A DAY
     Route: 048
     Dates: start: 20000101, end: 20051201
  4. SEROQUEL [Suspect]
     Dosage: 25MG - 600MG
     Route: 048
     Dates: start: 20000328
  5. SEROQUEL [Suspect]
     Dosage: 25MG - 600MG
     Route: 048
     Dates: start: 20000328
  6. SEROQUEL [Suspect]
     Dosage: 25MG - 600MG
     Route: 048
     Dates: start: 20000328
  7. RISPERDAL [Concomitant]
     Route: 048
     Dates: start: 20051201, end: 20060201
  8. ACETAMINOPHEN [Concomitant]
     Indication: HEADACHE
     Dates: start: 20000314
  9. HALDOL [Concomitant]
     Dosage: 2MG -5MG
     Route: 048
     Dates: start: 19890101
  10. HALDOL [Concomitant]
     Route: 048
     Dates: start: 19980101, end: 20050101
  11. ZOLOFT [Concomitant]
     Route: 048
     Dates: start: 20040125
  12. WELLBUTRIN [Concomitant]
     Route: 048
     Dates: start: 20040125
  13. BENZTROPINE MESYLATE [Concomitant]
     Dates: start: 20000314
  14. ABILIFY [Concomitant]
     Dosage: 10-30 MG
     Dates: start: 20050101, end: 20060101
  15. TRAZODONE HCL [Concomitant]

REACTIONS (9)
  - DIABETIC COMPLICATION [None]
  - DIABETIC KETOACIDOSIS [None]
  - DYSKINESIA [None]
  - MUSCLE ATROPHY [None]
  - NEUROPATHY PERIPHERAL [None]
  - PANCREATITIS [None]
  - PANCREATITIS ACUTE [None]
  - TYPE 1 DIABETES MELLITUS [None]
  - TYPE 2 DIABETES MELLITUS [None]
